FAERS Safety Report 23264448 (Version 1)
Quarter: 2023Q4

REPORT INFORMATION
  Report Type: Report from Study
  Country: TN (occurrence: TN)
  Receive Date: 20231205
  Receipt Date: 20231205
  Transmission Date: 20240110
  Serious: Yes (Hospitalization, Other)
  Sender: FDA-Public Use
  Company Number: TN-ABBVIE-5520585

PATIENT
  Age: 27 Year
  Sex: Female

DRUGS (3)
  1. HUMIRA [Suspect]
     Active Substance: ADALIMUMAB
     Indication: Crohn^s disease
     Dosage: FIRST ADMIN DATE: APPROXIMATELY JAN 2023, STRENGTH:40MG
     Route: 058
     Dates: end: 202305
  2. HUMIRA [Suspect]
     Active Substance: ADALIMUMAB
     Dosage: LOADING DOSE, STRENGTH:40MG
     Route: 058
     Dates: start: 20210927, end: 20210927
  3. HUMIRA [Suspect]
     Active Substance: ADALIMUMAB
     Dosage: LAST ADMIN DATE: APPROXIMATELY  JUN 2022, STRENGTH:40MG
     Route: 058
     Dates: start: 202203

REACTIONS (1)
  - Stenosis [Unknown]

NARRATIVE: CASE EVENT DATE: 20230807
